FAERS Safety Report 8746453 (Version 2)
Quarter: 2012Q4

REPORT INFORMATION
  Report Type: 
  Country: BR (occurrence: BR)
  Receive Date: 20120827
  Receipt Date: 20120907
  Transmission Date: 20130627
  Serious: Yes (Death)
  Sender: FDA-Public Use
  Company Number: PHHY2012BR072781

PATIENT
  Sex: Female

DRUGS (2)
  1. STARLIX [Suspect]
     Dosage: 120 mg
  2. ZELMAC [Suspect]
     Dosage: 6 mg

REACTIONS (1)
  - Death [Fatal]
